FAERS Safety Report 9036463 (Version 1)
Quarter: 2013Q1

REPORT INFORMATION
  Report Type: Spontaneous
  Country: SG (occurrence: None)
  Receive Date: 20130114
  Receipt Date: 20130114
  Transmission Date: 20140127
  Serious: Yes (Hospitalization)
  Sender: FDA-Public Use
  Company Number: DSA_61852_2013

PATIENT
  Age: 29 Year
  Sex: Male

DRUGS (7)
  1. FLUOROURACIL [Suspect]
     Indication: COLORECTAL CANCER METASTATIC
     Route: 040
     Dates: start: 20121112, end: 20121112
  2. BLINDED THERAPY [Suspect]
     Indication: COLORECTAL CANCER METASTATIC
     Route: 041
     Dates: start: 20121112, end: 20121112
  3. IRINOTECAN (IRINOTECAN) [Suspect]
     Indication: COLORECTAL CANCER METASTATIC
     Route: 041
     Dates: start: 20121112, end: 20121112
  4. LEUCOVORIN /00566701/ (LEUCOVORIN-FOLINIC ACID) [Suspect]
     Indication: COLORECTAL CANCER METASTATIC
     Route: 041
     Dates: start: 20121112, end: 20121112
  5. METFORMIN HYDROCHLORIDE [Concomitant]
  6. GLICLAZIDE [Concomitant]
  7. OMEPRAZOLE [Concomitant]

REACTIONS (4)
  - Pyrexia [None]
  - Neutropenic sepsis [None]
  - Device related infection [None]
  - White blood cell count decreased [None]
